FAERS Safety Report 15904869 (Version 2)
Quarter: 2019Q2

REPORT INFORMATION
  Report Type: Spontaneous
  Country: JP (occurrence: JP)
  Receive Date: 20190204
  Receipt Date: 20190606
  Transmission Date: 20190711
  Serious: Yes (Hospitalization)
  Sender: FDA-Public Use
  Company Number: JP-SA-2019SA027078

PATIENT
  Age: 60 Year
  Sex: Male

DRUGS (4)
  1. 5-FU [FLUOROURACIL] [Suspect]
     Active Substance: FLUOROURACIL
     Indication: COLON CANCER
  2. CETUXIMAB. [Suspect]
     Active Substance: CETUXIMAB
     Indication: COLON CANCER
  3. OXALIPLATIN. [Suspect]
     Active Substance: OXALIPLATIN
     Indication: COLON CANCER
     Dosage: UNK UNK, QD
  4. LEVOFOLINATE CALCIUM [Suspect]
     Active Substance: LEVOLEUCOVORIN CALCIUM
     Indication: COLON CANCER
     Dosage: UNK

REACTIONS (6)
  - Peritonitis [Unknown]
  - Abdominal mass [Unknown]
  - Tumour perforation [Unknown]
  - Condition aggravated [Unknown]
  - Bacteraemia [Unknown]
  - Abdominal pain upper [Unknown]
